FAERS Safety Report 7785712-4 (Version None)
Quarter: 2011Q3

REPORT INFORMATION
  Report Type: 
  Country: None (occurrence: None)
  Receive Date: 20110929
  Receipt Date: 20110923
  Transmission Date: 20111222
  Serious: Yes (Other)
  Sender: FDA-Public Use
  Company Number: NL-ROXANE LABORATORIES, INC.-2011-RO-01341RO

PATIENT
  Age: 15 Month
  Sex: Female

DRUGS (2)
  1. PREDNISONE [Suspect]
     Indication: HAEMANGIOMA
  2. PROPRANOLOL [Suspect]
     Indication: HAEMANGIOMA

REACTIONS (2)
  - HYPOGLYCAEMIA [None]
  - ADRENAL INSUFFICIENCY [None]
